FAERS Safety Report 7786583-2 (Version None)
Quarter: 2011Q3

REPORT INFORMATION
  Report Type: 
  Country: None (occurrence: None)
  Receive Date: 20110929
  Receipt Date: 20110919
  Transmission Date: 20111222
  Serious: Yes (Other)
  Sender: FDA-Public Use
  Company Number: CA-ELI_LILLY_AND_COMPANY-CA201109005157

PATIENT
  Sex: Female

DRUGS (11)
  1. CELEXA [Concomitant]
  2. ZYPREXA [Suspect]
     Dosage: 20 MG, QD
  3. LITHIUM CARBONATE [Concomitant]
  4. ZYPREXA [Suspect]
     Dosage: 10 MG, QD
  5. RISPERDAL [Concomitant]
  6. TOPAMAX [Concomitant]
  7. ZYPREXA [Suspect]
     Dosage: 7.5 MG, QD
  8. ZYPREXA [Suspect]
     Indication: SCHIZOPHRENIA
     Dosage: 5 MG, QD
  9. ZYPREXA [Suspect]
     Dosage: 15 MG, QD
     Dates: start: 19981218
  10. SEROQUEL [Concomitant]
  11. RITALIN [Concomitant]

REACTIONS (11)
  - MITRAL VALVE PROLAPSE [None]
  - VISION BLURRED [None]
  - CHEST DISCOMFORT [None]
  - HYPERTENSION [None]
  - OEDEMA PERIPHERAL [None]
  - HAEMORRHOIDAL HAEMORRHAGE [None]
  - ATRIAL FIBRILLATION [None]
  - WEIGHT INCREASED [None]
  - HYPOAESTHESIA [None]
  - DYSLIPIDAEMIA [None]
  - DIABETES MELLITUS [None]
